FAERS Safety Report 13618882 (Version 1)
Quarter: 2017Q2

REPORT INFORMATION
  Report Type: Spontaneous
  Country: US (occurrence: US)
  Receive Date: 20170606
  Receipt Date: 20170606
  Transmission Date: 20170830
  Serious: Yes (Other)
  Sender: FDA-Public Use
  Company Number: None

PATIENT
  Age: 75 Year
  Sex: Male

DRUGS (1)
  1. ERIVEDGE [Suspect]
     Active Substance: VISMODEGIB
     Indication: BASAL CELL CARCINOMA
     Route: 048
     Dates: start: 20170411, end: 20170602

REACTIONS (5)
  - Depression [None]
  - Dysgeusia [None]
  - Fatigue [None]
  - Constipation [None]
  - Somnolence [None]

NARRATIVE: CASE EVENT DATE: 20170606
